FAERS Safety Report 13689018 (Version 1)
Quarter: 2017Q2

REPORT INFORMATION
  Report Type: Spontaneous
  Country: US (occurrence: US)
  Receive Date: 20170624
  Receipt Date: 20170624
  Transmission Date: 20170830
  Serious: Yes (Life-Threatening, Hospitalization, Disabling)
  Sender: FDA-Public Use
  Company Number: None

PATIENT
  Age: 49 Year
  Sex: Male
  Weight: 81 kg

DRUGS (2)
  1. TEMAZEPAM. [Suspect]
     Active Substance: TEMAZEPAM
     Indication: INSOMNIA
     Dosage: ?          OTHER STRENGTH:MG/ML;QUANTITY:1 CAPSULE(S);?
     Route: 048
  2. REMICADE [Concomitant]
     Active Substance: INFLIXIMAB

REACTIONS (12)
  - Cognitive disorder [None]
  - Feeling abnormal [None]
  - Substance-induced psychotic disorder [None]
  - Impaired quality of life [None]
  - Headache [None]
  - Depression [None]
  - Derealisation [None]
  - Drug tolerance increased [None]
  - Therapy cessation [None]
  - Paradoxical drug reaction [None]
  - Withdrawal syndrome [None]
  - Anxiety [None]

NARRATIVE: CASE EVENT DATE: 20071203
